FAERS Safety Report 12766732 (Version 2)
Quarter: 2017Q1

REPORT INFORMATION
  Report Type: Spontaneous
  Country: US (occurrence: US)
  Receive Date: 20160921
  Receipt Date: 20170117
  Transmission Date: 20170428
  Serious: Yes (Hospitalization, Other)
  Sender: FDA-Public Use
  Company Number: US-BRISTOL-MYERS SQUIBB COMPANY-BMS-2016-074519

PATIENT
  Age: 84 Year
  Sex: Female
  Weight: 64.4 kg

DRUGS (2)
  1. COUMADIN [Suspect]
     Active Substance: WARFARIN SODIUM
     Indication: DEEP VEIN THROMBOSIS
     Route: 065
  2. COUMADIN [Suspect]
     Active Substance: WARFARIN SODIUM
     Indication: ATRIAL FIBRILLATION
     Dosage: 10 MG, QD
     Route: 048
     Dates: start: 201204

REACTIONS (5)
  - Haemorrhage [Unknown]
  - Limb injury [Unknown]
  - Hip surgery [Unknown]
  - Femur fracture [Unknown]
  - Fracture treatment [Unknown]

NARRATIVE: CASE EVENT DATE: 201206
